FAERS Safety Report 4649471-6 (Version None)
Quarter: 2005Q2

REPORT INFORMATION
  Report Type: 
  Country: None (occurrence: None)
  Receive Date: 20050428
  Receipt Date: 20050428
  Transmission Date: 20051028
  Serious: Yes (Hospitalization)
  Sender: FDA-Public Use
  Company Number: None

PATIENT
  Age: 33 Year
  Sex: Male
  Weight: 90.7194 kg

DRUGS (4)
  1. KADIAN [Suspect]
     Indication: BACK PAIN
  2. KADIAN [Suspect]
     Indication: PAIN IN EXTREMITY
  3. KLONOPIN [Concomitant]
  4. IMIPRAMINE [Concomitant]

REACTIONS (4)
  - CEREBROVASCULAR ACCIDENT [None]
  - HEADACHE [None]
  - HYPOAESTHESIA [None]
  - VOMITING [None]
